FAERS Safety Report 9212775 (Version 1)
Quarter: 2013Q2

REPORT INFORMATION
  Report Type: Spontaneous
  Country: US (occurrence: US)
  Receive Date: 20130405
  Receipt Date: 20130405
  Transmission Date: 20140414
  Serious: Yes (Other)
  Sender: FDA-Public Use
  Company Number: US-TEVA-396013USA

PATIENT
  Age: 53 Year
  Sex: Male

DRUGS (7)
  1. GABAPENTIN [Suspect]
     Indication: CENTRAL PAIN SYNDROME
     Route: 065
  2. NORTRIPTYLINE [Suspect]
     Indication: CENTRAL PAIN SYNDROME
     Route: 065
  3. PREGABALIN [Suspect]
     Indication: CENTRAL PAIN SYNDROME
     Route: 065
  4. AMITRIPTYLINE [Suspect]
     Indication: CENTRAL PAIN SYNDROME
     Route: 065
  5. MORPHINE [Suspect]
     Indication: CENTRAL PAIN SYNDROME
     Route: 048
  6. HYDROCODONE [Suspect]
     Indication: CENTRAL PAIN SYNDROME
     Route: 048
  7. PARACETAMOL [Suspect]
     Indication: CENTRAL PAIN SYNDROME
     Route: 048

REACTIONS (3)
  - Cognitive disorder [Unknown]
  - Sedation [Unknown]
  - Somnolence [Unknown]
